FAERS Safety Report 12342144 (Version 1)
Quarter: 2016Q2

REPORT INFORMATION
  Report Type: Spontaneous
  Country: US (occurrence: US)
  Receive Date: 20160506
  Receipt Date: 20160506
  Transmission Date: 20160815
  Serious: No
  Sender: FDA-Public Use
  Company Number: US-ANACOR-2016ANA00045

PATIENT
  Age: 51 Year
  Sex: Female
  Weight: 84.81 kg

DRUGS (3)
  1. MOTRIN [Concomitant]
     Active Substance: IBUPROFEN
     Dosage: 800 MG, UNK
  2. KERYDIN [Suspect]
     Active Substance: TAVABOROLE
     Indication: ONYCHOMYCOSIS
     Dosage: 2 GTT, 1X/DAY
     Route: 061
     Dates: start: 20160129, end: 20160130
  3. KERYDIN [Suspect]
     Active Substance: TAVABOROLE
     Dosage: 2 DOSAGE UNITS, 1X/DAY
     Route: 061
     Dates: start: 20160201, end: 20160203

REACTIONS (2)
  - Sensitivity of teeth [Not Recovered/Not Resolved]
  - Toothache [Not Recovered/Not Resolved]

NARRATIVE: CASE EVENT DATE: 20160130
